FAERS Safety Report 6526610-3 (Version None)
Quarter: 2010Q1

REPORT INFORMATION
  Report Type: 
  Country: None (occurrence: None)
  Receive Date: 20100105
  Receipt Date: 20091228
  Transmission Date: 20100710
  Serious: Yes (Death)
  Sender: FDA-Public Use
  Company Number: JP-ROCHE-674552

PATIENT
  Age: 40 Year
  Sex: Female

DRUGS (1)
  1. TAMIFLU [Suspect]
     Dosage: STOP DATE: 2009. DOSE, FREQUENCY UNSPECIFIED.
     Route: 048
     Dates: start: 20091116

REACTIONS (2)
  - PATHOGEN RESISTANCE [None]
  - PNEUMONIA INFLUENZAL [None]
